FAERS Safety Report 23127153 (Version 3)
Quarter: 2023Q4

REPORT INFORMATION
  Report Type: Spontaneous
  Country: JP (occurrence: JP)
  Receive Date: 20231030
  Receipt Date: 20231204
  Transmission Date: 20240109
  Serious: Yes (Death, Life-Threatening, Hospitalization, Other)
  Sender: FDA-Public Use
  Company Number: JP-MSD-M2023-45823

PATIENT
  Age: 94 Year
  Sex: Male
  Weight: 51 kg

DRUGS (2)
  1. LAGEVRIO [Suspect]
     Active Substance: MOLNUPIRAVIR
     Indication: COVID-19 treatment
     Dosage: 800 MILLIGRAM, BID
     Route: 048
     Dates: start: 20231017, end: 20231019
  2. NOREPINEPHRINE [Concomitant]
     Active Substance: NOREPINEPHRINE
     Indication: Shock
     Dosage: UNK
     Route: 065
     Dates: start: 20231014, end: 20231016

REACTIONS (5)
  - Hepatic function abnormal [Fatal]
  - Electrolyte imbalance [Fatal]
  - Platelet count decreased [Fatal]
  - Depressed level of consciousness [Fatal]
  - Pyrexia [Unknown]

NARRATIVE: CASE EVENT DATE: 20231018
